FAERS Safety Report 15350015 (Version 2)
Quarter: 2018Q4

REPORT INFORMATION
  Report Type: Report from Study
  Country: IT (occurrence: IT)
  Receive Date: 20180904
  Receipt Date: 20181009
  Transmission Date: 20190204
  Serious: Yes (Death, Life-Threatening, Disabling, Other)
  Sender: FDA-Public Use
  Company Number: IT-AMGEN-ITANI2018121945

PATIENT
  Age: 2 Year
  Sex: Female
  Weight: 12.3 kg

DRUGS (29)
  1. DEXAMETASON [Concomitant]
     Active Substance: DEXAMETHASONE
     Dosage: 1.5 MG, X 3
     Route: 042
     Dates: start: 20180713
  2. PREDNISONE. [Concomitant]
     Active Substance: PREDNISONE
     Dosage: UNK
     Route: 037
     Dates: start: 20180713
  3. LEVETIRACETAM. [Concomitant]
     Active Substance: LEVETIRACETAM
     Dosage: 240 MG, BID
     Route: 048
     Dates: start: 20180827, end: 20180829
  4. AMLODIPINE [Concomitant]
     Active Substance: AMLODIPINE BESYLATE
     Dosage: 2.5 MG, QD
     Route: 048
     Dates: end: 20180829
  5. COTRIMOXAZOLE [Concomitant]
     Active Substance: SULFAMETHOXAZOLE\TRIMETHOPRIM
     Dosage: 2 ML, BID
     Route: 048
     Dates: end: 20180829
  6. MORPHIN [Concomitant]
     Active Substance: MORPHINE
     Dosage: 8 MG, UNK
     Route: 042
     Dates: start: 20180821, end: 20180822
  7. MORPHIN [Concomitant]
     Active Substance: MORPHINE
     Dosage: 4 MG, UNK
     Route: 042
     Dates: start: 20180822, end: 20180823
  8. PHYTOMENADIONE [Concomitant]
     Active Substance: PHYTONADIONE
     Dosage: 4 MG, (3 TIMES A WEEK)
     Route: 042
     Dates: end: 20180829
  9. CHLORPHENIRAMINE. [Concomitant]
     Active Substance: CHLORPHENIRAMINE
     Dosage: 2 MG, AS NECESSARY
     Route: 042
     Dates: end: 20180829
  10. COLECALCIFEROL [Concomitant]
     Active Substance: CHOLECALCIFEROL
     Dosage: 500 U/L, QD
     Route: 048
     Dates: end: 20180828
  11. ONDANSETRON [Concomitant]
     Active Substance: ONDANSETRON
     Dosage: 2 MG, AS NECESSARY
     Dates: end: 20180829
  12. FUROSEMIDE. [Concomitant]
     Active Substance: FUROSEMIDE
     Dosage: UNK UNK, AS NECESSARY
     Dates: end: 20180829
  13. PARACETAMOL [Concomitant]
     Active Substance: ACETAMINOPHEN
     Dosage: 150 MG, QID
     Dates: end: 20180829
  14. VINCRISTINA [Concomitant]
     Active Substance: VINCRISTINE
     Dosage: UNK
     Route: 037
     Dates: start: 20180713
  15. SILIMARIN [Concomitant]
     Dosage: 35 MG, BID
     Route: 048
     Dates: end: 20180828
  16. BLINATUMOMAB [Suspect]
     Active Substance: BLINATUMOMAB
     Indication: ACUTE LYMPHOCYTIC LEUKAEMIA
     Dosage: 2.5 MUG, QD
     Route: 042
     Dates: start: 20180817, end: 20180820
  17. LEVETIRACETAM. [Concomitant]
     Active Substance: LEVETIRACETAM
     Dosage: 120 MG/KG, BID
     Route: 048
     Dates: start: 20180816, end: 20180826
  18. RANITIDINE. [Concomitant]
     Active Substance: RANITIDINE
     Dosage: 12.5 MG, BID
     Route: 042
     Dates: end: 20180829
  19. METAMIZOLE [Concomitant]
     Active Substance: METAMIZOLE
     Dosage: 200 MG, AS NECESSARY
     Route: 042
     Dates: start: 20180829
  20. ATENOLOL. [Concomitant]
     Active Substance: ATENOLOL
     Dosage: 12.5 MG, QD
     Route: 048
     Dates: end: 20180829
  21. MORPHIN [Concomitant]
     Active Substance: MORPHINE
     Indication: PAIN
     Dosage: 15 MG, UNK
     Route: 042
     Dates: start: 20180820
  22. MORPHIN [Concomitant]
     Active Substance: MORPHINE
     Dosage: 7 MG, UNK
     Route: 042
     Dates: start: 20180822
  23. MORPHIN [Concomitant]
     Active Substance: MORPHINE
     Dosage: 2 MG, UNK
     Route: 042
     Dates: start: 20180823, end: 20180824
  24. VINCRISTINA [Concomitant]
     Active Substance: VINCRISTINE
     Dosage: 0.75 MG, ONCE
     Route: 042
     Dates: start: 20180829
  25. METHOTREXATE. [Concomitant]
     Active Substance: METHOTREXATE
     Dosage: UNK
     Route: 037
     Dates: start: 20180713
  26. MORPHIN [Concomitant]
     Active Substance: MORPHINE
     Dosage: 12 MG, UNK
     Route: 042
     Dates: start: 20180820, end: 20180821
  27. NYSTATIN. [Concomitant]
     Active Substance: NYSTATIN
     Dosage: 2 ML, TID
     Route: 048
     Dates: end: 20180829
  28. ALLOPURINOL. [Concomitant]
     Active Substance: ALLOPURINOL
     Dosage: 50 MG, BID
     Route: 048
     Dates: end: 20180829
  29. LACTULOSE. [Concomitant]
     Active Substance: LACTULOSE
     Dosage: 5 ML, QD
     Dates: end: 20180829

REACTIONS (3)
  - Disease progression [Fatal]
  - Pneumonia [Fatal]
  - Encephalopathy [Not Recovered/Not Resolved]

NARRATIVE: CASE EVENT DATE: 20180820
